FAERS Safety Report 8805784 (Version 2)
Quarter: 2012Q4

REPORT INFORMATION
  Report Type: 
  Country: CZ (occurrence: CZ)
  Receive Date: 20120924
  Receipt Date: 20121107
  Transmission Date: 20130627
  Serious: Yes (Hospitalization)
  Sender: FDA-Public Use
  Company Number: CZ-BAXTER-2012BAX017392

PATIENT
  Sex: Male

DRUGS (1)
  1. PLASMALYTE ROZTOK [Suspect]
     Indication: FLUID REPLACEMENT
     Dates: start: 20120912, end: 20120912

REACTIONS (5)
  - Respiratory disorder [Recovered/Resolved]
  - Tachycardia [Recovered/Resolved]
  - Hypertension [Recovered/Resolved]
  - Hyperhidrosis [Recovered/Resolved]
  - Convulsion [Recovered/Resolved]
